FAERS Safety Report 24371998 (Version 1)
Quarter: 2024Q3

REPORT INFORMATION
  Report Type: Spontaneous
  Country: GB (occurrence: GB)
  Receive Date: 20240927
  Receipt Date: 20240927
  Transmission Date: 20241016
  Serious: Yes (Hospitalization)
  Sender: TEVA
  Company Number: GB-RELONP-2024SCRC060692

PATIENT
  Sex: Female

DRUGS (1)
  1. PREDNISOLONE [Suspect]
     Active Substance: PREDNISOLONE
     Indication: Oral lichen planus
     Route: 065
     Dates: start: 20240825, end: 20240831

REACTIONS (14)
  - Paralysis [Unknown]
  - Adrenocortical insufficiency acute [Unknown]
  - Steroid withdrawal syndrome [Unknown]
  - Chest pain [Unknown]
  - Circulatory collapse [Unknown]
  - Vomiting [Unknown]
  - Dizziness [Unknown]
  - Panic attack [Unknown]
  - Dyspepsia [Unknown]
  - Nausea [Unknown]
  - Hypotension [Unknown]
  - Confusional state [Unknown]
  - Malaise [Not Recovered/Not Resolved]
  - Fatigue [Unknown]

NARRATIVE: CASE EVENT DATE: 20240901
